FAERS Safety Report 16015382 (Version 1)
Quarter: 2019Q1

REPORT INFORMATION
  Report Type: Spontaneous
  Country: CN (occurrence: CN)
  Receive Date: 20190228
  Receipt Date: 20190228
  Transmission Date: 20190418
  Serious: Yes (Other)
  Sender: FDA-Public Use
  Company Number: CN-ROCHE-2272171

PATIENT
  Age: 45 Year
  Sex: Female

DRUGS (42)
  1. MABTHERA [Suspect]
     Active Substance: RITUXIMAB
     Dosage: ON DAY 0
     Route: 065
     Dates: start: 20140503
  2. ETOPOSIDE. [Concomitant]
     Active Substance: ETOPOSIDE
     Dosage: FROM DAY 1 TO DAY 4
     Route: 065
     Dates: start: 20140317
  3. EPIRUBICIN [Concomitant]
     Active Substance: EPIRUBICIN
     Dosage: FROM DAY 1 TO DAY 4
     Route: 065
     Dates: start: 20140531
  4. CYCLOPHOSPHAMIDE. [Concomitant]
     Active Substance: CYCLOPHOSPHAMIDE
     Dosage: ON DAY 5
     Route: 065
     Dates: start: 20140531
  5. DEXAMETHASONE. [Concomitant]
     Active Substance: DEXAMETHASONE
     Dosage: 15 MG FROM D1 OT D5; 5MG BY INTRATHECAL INJECTION
     Route: 037
     Dates: start: 20140317
  6. ETOPOSIDE. [Concomitant]
     Active Substance: ETOPOSIDE
     Dosage: FROM DAY 1 TO DAY 4
     Route: 065
     Dates: start: 20140531
  7. VINCRISTINE [Concomitant]
     Active Substance: VINCRISTINE
     Dosage: FROM DAY 1 TO DAY 4
     Route: 065
     Dates: start: 20140626
  8. CYCLOPHOSPHAMIDE. [Concomitant]
     Active Substance: CYCLOPHOSPHAMIDE
     Dosage: ON DAY 5
     Route: 065
     Dates: start: 20140317
  9. METHOTREXATE. [Concomitant]
     Active Substance: METHOTREXATE
     Indication: DIFFUSE LARGE B-CELL LYMPHOMA
     Route: 037
     Dates: start: 20140221
  10. METHOTREXATE. [Concomitant]
     Active Substance: METHOTREXATE
     Route: 037
     Dates: start: 20140410
  11. METHOTREXATE. [Concomitant]
     Active Substance: METHOTREXATE
     Route: 037
     Dates: start: 20140531
  12. VINCRISTINE [Concomitant]
     Active Substance: VINCRISTINE
     Indication: DIFFUSE LARGE B-CELL LYMPHOMA
     Dosage: FROM DAY 1 TO DAY 4
     Route: 065
     Dates: start: 20140221
  13. CYCLOPHOSPHAMIDE. [Concomitant]
     Active Substance: CYCLOPHOSPHAMIDE
     Dosage: ON DAY 5
     Route: 065
     Dates: start: 20140626
  14. DEXAMETHASONE. [Concomitant]
     Active Substance: DEXAMETHASONE
     Dosage: 15 MG FROM D1 OT D5; 5MG BY INTRATHECAL INJECTION
     Route: 037
     Dates: start: 20140410
  15. DEXAMETHASONE. [Concomitant]
     Active Substance: DEXAMETHASONE
     Dosage: 15 MG FROM D1 OT D5; 5MG BY INTRATHECAL INJECTION
     Route: 037
     Dates: start: 20140531
  16. MABTHERA [Suspect]
     Active Substance: RITUXIMAB
     Dosage: ON DAY 0
     Route: 065
     Dates: start: 20140317
  17. MABTHERA [Suspect]
     Active Substance: RITUXIMAB
     Dosage: ON DAY 0
     Route: 065
     Dates: start: 20140531
  18. EPIRUBICIN [Concomitant]
     Active Substance: EPIRUBICIN
     Dosage: FROM DAY 1 TO DAY 4
     Route: 065
     Dates: start: 20140317
  19. EPIRUBICIN [Concomitant]
     Active Substance: EPIRUBICIN
     Dosage: FROM DAY 1 TO DAY 4
     Route: 065
     Dates: start: 20140626
  20. MABTHERA [Suspect]
     Active Substance: RITUXIMAB
     Dosage: ON DAY 0
     Route: 065
     Dates: start: 20140410
  21. MABTHERA [Suspect]
     Active Substance: RITUXIMAB
     Dosage: ON DAY 0
     Route: 065
     Dates: start: 20140626
  22. ETOPOSIDE. [Concomitant]
     Active Substance: ETOPOSIDE
     Indication: DIFFUSE LARGE B-CELL LYMPHOMA
     Dosage: FROM DAY 1 TO DAY 4
     Route: 065
     Dates: start: 20140221
  23. ETOPOSIDE. [Concomitant]
     Active Substance: ETOPOSIDE
     Dosage: FROM DAY 1 TO DAY 4
     Route: 065
     Dates: start: 20140503
  24. VINCRISTINE [Concomitant]
     Active Substance: VINCRISTINE
     Dosage: FROM DAY 1 TO DAY 4
     Route: 065
     Dates: start: 20140531
  25. EPIRUBICIN [Concomitant]
     Active Substance: EPIRUBICIN
     Indication: DIFFUSE LARGE B-CELL LYMPHOMA
     Dosage: FROM DAY 1 TO DAY 4
     Route: 065
     Dates: start: 20140221
  26. EPIRUBICIN [Concomitant]
     Active Substance: EPIRUBICIN
     Dosage: FROM DAY 1 TO DAY 4
     Route: 065
     Dates: start: 20140410
  27. VINCRISTINE [Concomitant]
     Active Substance: VINCRISTINE
     Dosage: FROM DAY 1 TO DAY 4
     Route: 065
     Dates: start: 20140317
  28. VINCRISTINE [Concomitant]
     Active Substance: VINCRISTINE
     Dosage: FROM DAY 1 TO DAY 4
     Route: 065
     Dates: start: 20140503
  29. CYCLOPHOSPHAMIDE. [Concomitant]
     Active Substance: CYCLOPHOSPHAMIDE
     Dosage: ON DAY 5
     Route: 065
     Dates: start: 20140503
  30. METHOTREXATE. [Concomitant]
     Active Substance: METHOTREXATE
     Route: 037
     Dates: start: 20140317
  31. MABTHERA [Suspect]
     Active Substance: RITUXIMAB
     Indication: DIFFUSE LARGE B-CELL LYMPHOMA
     Dosage: ON DAY 0
     Route: 065
     Dates: start: 20140221
  32. EPIRUBICIN [Concomitant]
     Active Substance: EPIRUBICIN
     Dosage: FROM DAY 1 TO DAY 4
     Route: 065
     Dates: start: 20140503
  33. DEXAMETHASONE. [Concomitant]
     Active Substance: DEXAMETHASONE
     Indication: DIFFUSE LARGE B-CELL LYMPHOMA
     Dosage: 15 MG FROM D1 OT D5; 5MG BY INTRATHECAL INJECTION
     Route: 037
     Dates: start: 20140221
  34. METHOTREXATE. [Concomitant]
     Active Substance: METHOTREXATE
     Route: 037
     Dates: start: 20140503
  35. ETOPOSIDE. [Concomitant]
     Active Substance: ETOPOSIDE
     Dosage: FROM DAY 1 TO DAY 4
     Route: 065
     Dates: start: 20140410
  36. ETOPOSIDE. [Concomitant]
     Active Substance: ETOPOSIDE
     Dosage: FROM DAY 1 TO DAY 4
     Route: 065
     Dates: start: 20140626
  37. VINCRISTINE [Concomitant]
     Active Substance: VINCRISTINE
     Dosage: FROM DAY 1 TO DAY 4
     Route: 065
     Dates: start: 20140410
  38. CYCLOPHOSPHAMIDE. [Concomitant]
     Active Substance: CYCLOPHOSPHAMIDE
     Indication: DIFFUSE LARGE B-CELL LYMPHOMA
     Dosage: ON DAY 5
     Route: 065
     Dates: start: 20140221
  39. CYCLOPHOSPHAMIDE. [Concomitant]
     Active Substance: CYCLOPHOSPHAMIDE
     Dosage: ON DAY 5
     Route: 065
     Dates: start: 20140410
  40. DEXAMETHASONE. [Concomitant]
     Active Substance: DEXAMETHASONE
     Dosage: 15 MG FROM D1 OT D5; 5MG BY INTRATHECAL INJECTION
     Route: 037
     Dates: start: 20140503
  41. DEXAMETHASONE. [Concomitant]
     Active Substance: DEXAMETHASONE
     Dosage: 15 MG FROM D1 OT D5; 5MG BY INTRATHECAL INJECTION
     Route: 037
     Dates: start: 20140626
  42. METHOTREXATE. [Concomitant]
     Active Substance: METHOTREXATE
     Route: 037
     Dates: start: 20140626

REACTIONS (2)
  - Nephrolithiasis [Unknown]
  - Uterine enlargement [Unknown]
